FAERS Safety Report 21046588 (Version 3)
Quarter: 2022Q3

REPORT INFORMATION
  Report Type: Spontaneous
  Country: ES (occurrence: ES)
  Receive Date: 20220706
  Receipt Date: 20220718
  Transmission Date: 20221027
  Serious: Yes (Hospitalization, Other)
  Sender: FDA-Public Use
  Company Number: ES-EMA-DD-20180308-KSEVHUMANWT-113443

PATIENT
  Sex: Female
  Weight: 1.53 kg

DRUGS (6)
  1. FUROSEMIDE [Suspect]
     Active Substance: FUROSEMIDE
     Indication: Hyperparathyroidism primary
     Dosage: 20 MILLIGRAM, 3 TIMES A DAY
     Route: 064
  2. CINACALCET [Suspect]
     Active Substance: CINACALCET
     Indication: Hypercalcaemia
     Dosage: 30 MILLIGRAM
     Route: 064
  3. CINACALCET [Suspect]
     Active Substance: CINACALCET
     Indication: Hyperparathyroidism primary
  4. CALCITONIN SALMON [Suspect]
     Active Substance: CALCITONIN SALMON
     Indication: Hypercalcaemia
     Dosage: 100 INTERNATIONAL UNIT, FOUR TIMES/DAY
     Route: 064
  5. CALCITONIN SALMON [Suspect]
     Active Substance: CALCITONIN SALMON
     Indication: Hyperparathyroidism primary
  6. BETAMETHASONE [Suspect]
     Active Substance: BETAMETHASONE
     Indication: Maternal therapy to enhance foetal lung maturity
     Dosage: 2 DOSAGE FORM, TWO TIMES A DAY ( 2 DF, QOD DOSE 12 MG)
     Route: 064

REACTIONS (9)
  - Low birth weight baby [Unknown]
  - Foetal growth restriction [Unknown]
  - Foetal heart rate deceleration abnormality [Unknown]
  - Foetal exposure during pregnancy [Unknown]
  - Neonatal hypocalcaemia [Recovered/Resolved]
  - Jaundice neonatal [Recovered/Resolved]
  - Neonatal cholestasis [Recovered/Resolved]
  - Bilirubin conjugated increased [Unknown]
  - Underweight [Unknown]
